FAERS Safety Report 9960527 (Version 1)
Quarter: 2014Q1

REPORT INFORMATION
  Report Type: Spontaneous
  Country: US (occurrence: None)
  Receive Date: 20140304
  Receipt Date: 20140304
  Transmission Date: 20141002
  Serious: No
  Sender: FDA-Public Use
  Company Number: None

PATIENT
  Age: 65 Year
  Sex: Female
  Weight: 83.92 kg

DRUGS (1)
  1. MIRVASO 3.3 MG [Suspect]
     Indication: ROSACEA
     Dosage: 1 PEA SIZE TO 5 AREAS OF FACE ONCE IN MORNING
     Dates: start: 20140215, end: 20140215

REACTIONS (3)
  - Flushing [None]
  - Acne [None]
  - Skin warm [None]
